FAERS Safety Report 12052645 (Version 1)
Quarter: 2016Q1

REPORT INFORMATION
  Report Type: Report from Study
  Country: US (occurrence: US)
  Receive Date: 20160209
  Receipt Date: 20160209
  Transmission Date: 20160526
  Serious: No
  Sender: FDA-Public Use
  Company Number: US-ABBVIE-15P-163-1448088-00

PATIENT
  Age: 35 Year
  Sex: Female
  Weight: 106.69 kg

DRUGS (5)
  1. FLUVIRIN VACCINE (PRESERVATIVE FREE) [Concomitant]
     Indication: ANTIVIRAL PROPHYLAXIS
     Dosage: 1 SHOT
     Route: 050
     Dates: start: 20100917, end: 20100917
  2. AMOXICILLIN. [Concomitant]
     Active Substance: AMOXICILLIN
     Indication: EAR INFECTION
     Dosage: 1 PILL
     Route: 048
     Dates: start: 20100324, end: 20100329
  3. CAFFEINE. [Concomitant]
     Active Substance: CAFFEINE
     Indication: PRODUCT USED FOR UNKNOWN INDICATION
     Dosage: SODA-POP, 1 SERVING
     Route: 048
     Dates: start: 20100310, end: 20101210
  4. HUMIRA [Suspect]
     Active Substance: ADALIMUMAB
     Indication: PSORIASIS
     Route: 065
     Dates: start: 20100310, end: 20101210
  5. PRENATAL VITAMIN NOS [Concomitant]
     Indication: PRODUCT USED FOR UNKNOWN INDICATION
     Dosage: 2 PILL
     Route: 048
     Dates: start: 20100525, end: 20101210

REACTIONS (2)
  - Ear infection [Recovered/Resolved]
  - Exposure during pregnancy [Unknown]

NARRATIVE: CASE EVENT DATE: 20100324
